FAERS Safety Report 8029033-3 (Version None)
Quarter: 2012Q1

REPORT INFORMATION
  Report Type: 
  Country: None (occurrence: None)
  Receive Date: 20120106
  Receipt Date: 20111223
  Transmission Date: 20120608
  Serious: Yes (Hospitalization, Other)
  Sender: FDA-Public Use
  Company Number: US-AMGEN-USASP2011066103

PATIENT
  Age: 60 Year
  Sex: Female

DRUGS (5)
  1. EPOGEN [Suspect]
     Indication: RENAL FAILURE CHRONIC
     Dosage: 20000 UNIT, UNK
     Dates: start: 20070101
  2. PROCRIT [Suspect]
     Indication: BREAST CANCER METASTATIC
     Dosage: 60000 UNIT, Q2WK
     Route: 058
     Dates: start: 20091219
  3. ARANESP [Suspect]
     Dosage: 500 MUG, Q3WK
     Route: 058
     Dates: start: 20080220, end: 20091020
  4. ARANESP [Suspect]
     Indication: BREAST CANCER METASTATIC
     Dosage: 200 MUG, Q3WK
     Route: 058
     Dates: start: 20070806, end: 20071002
  5. ARANESP [Suspect]
     Dosage: 300 MUG, Q3WK
     Route: 058
     Dates: start: 20071016, end: 20080409

REACTIONS (3)
  - HOSPITALISATION [None]
  - BREAST CANCER METASTATIC [None]
  - BREAST CANCER RECURRENT [None]
